FAERS Safety Report 17587247 (Version 1)
Quarter: 2020Q1

REPORT INFORMATION
  Report Type: Spontaneous
  Country: US (occurrence: US)
  Receive Date: 20200326
  Receipt Date: 20200326
  Transmission Date: 20200409
  Serious: Yes (Hospitalization, Other)
  Sender: FDA-Public Use
  Company Number: US-BAYER-2020-049827

PATIENT
  Age: 92 Year
  Sex: Male

DRUGS (1)
  1. CIPRO [Suspect]
     Active Substance: CIPROFLOXACIN HYDROCHLORIDE
     Dosage: UNK

REACTIONS (7)
  - Subdural haemorrhage [None]
  - Hyponatraemia [None]
  - Hypertension [None]
  - Blood sodium decreased [None]
  - Speech disorder [None]
  - Cerebrovascular accident [None]
  - Hemiparesis [None]
